FAERS Safety Report 8859539 (Version 3)
Quarter: 2012Q4

REPORT INFORMATION
  Report Type: Report from Study
  Country: US (occurrence: US)
  Receive Date: 20121024
  Receipt Date: 20121121
  Transmission Date: 20130627
  Serious: Yes (Hospitalization)
  Sender: FDA-Public Use
  Company Number: US-ABBOTT-12P-163-0995751-00

PATIENT
  Age: 67 Year
  Sex: Female

DRUGS (11)
  1. PREMARIN [Concomitant]
     Indication: HORMONE REPLACEMENT THERAPY
  2. FERREX [Concomitant]
     Indication: ANAEMIA
  3. B-12 [Concomitant]
     Indication: PRODUCT USED FOR UNKNOWN INDICATION
     Dosage: 10 ml monthly
  4. SOTALOL [Concomitant]
     Indication: PRODUCT USED FOR UNKNOWN INDICATION
  5. SOTALOL [Concomitant]
     Dates: start: 20121008
  6. COLESTIPOL [Concomitant]
     Indication: ABNORMAL FAECES
     Dates: start: 20121016
  7. COLESTIPOL [Concomitant]
     Indication: OEDEMA PERIPHERAL
  8. HUMIRA [Suspect]
     Indication: CROHN^S DISEASE
     Dates: start: 20120806
  9. DEXILANT [Concomitant]
     Indication: GASTROOESOPHAGEAL REFLUX DISEASE
  10. LEXAPRO [Concomitant]
     Indication: DEPRESSION
  11. AMBIEN CR [Concomitant]
     Indication: INSOMNIA
     Dosage: at night

REACTIONS (12)
  - Atrial fibrillation [Not Recovered/Not Resolved]
  - Nodule [Unknown]
  - Tenderness [Unknown]
  - Erythema [Unknown]
  - Headache [Unknown]
  - Oedema peripheral [Recovering/Resolving]
  - Cardiac failure congestive [Unknown]
  - Dyspnoea [Recovering/Resolving]
  - Dyspnoea [Unknown]
  - Pulmonary oedema [Unknown]
  - Alopecia [Unknown]
  - Spinal pain [Unknown]
